FAERS Safety Report 6807707-7 (Version None)
Quarter: 2010Q2

REPORT INFORMATION
  Report Type: 
  Country: None (occurrence: None)
  Receive Date: 20100629
  Receipt Date: 20081029
  Transmission Date: 20101027
  Serious: No
  Sender: FDA-Public Use
  Company Number: US-PFIZER INC-2008092147

PATIENT
  Sex: Female

DRUGS (3)
  1. XANAX [Suspect]
     Indication: ANXIETY
     Dates: start: 20081001
  2. LEXAPRO [Suspect]
  3. EFFEXOR [Suspect]

REACTIONS (4)
  - DRY EYE [None]
  - MYDRIASIS [None]
  - OCULAR HYPERAEMIA [None]
  - VISION BLURRED [None]
